FAERS Safety Report 7033402-8 (Version None)
Quarter: 2010Q4

REPORT INFORMATION
  Report Type: 
  Country: None (occurrence: None)
  Receive Date: 20101007
  Receipt Date: 20100929
  Transmission Date: 20110411
  Serious: No
  Sender: FDA-Public Use
  Company Number: US-B.I. PHARMACEUTICALS,INC./RIDGEFIELD-2010-BP-11056BP

PATIENT
  Sex: Female

DRUGS (4)
  1. SPIRIVA [Suspect]
     Indication: HYPERSENSITIVITY
     Dosage: 18 MCG
     Route: 055
     Dates: start: 20090501
  2. SPIRIVA [Suspect]
     Indication: PROPHYLAXIS AGAINST HIV INFECTION
  3. CHEMOTHERAPY [Concomitant]
     Indication: ENDOMETRIAL CANCER
     Dates: end: 20100601
  4. RADIATION [Concomitant]
     Indication: ENDOMETRIAL CANCER
     Dates: end: 20100601

REACTIONS (3)
  - FALL [None]
  - FOOT FRACTURE [None]
  - SKIN MACERATION [None]
